FAERS Safety Report 18131052 (Version 1)
Quarter: 2020Q3

REPORT INFORMATION
  Report Type: Spontaneous
  Country: CN (occurrence: CN)
  Receive Date: 20200810
  Receipt Date: 20200810
  Transmission Date: 20201103
  Serious: Yes (Other)
  Sender: FDA-Public Use
  Company Number: CN-PFIZER INC-2020301471

PATIENT
  Age: 3 Month
  Sex: Male

DRUGS (1)
  1. MEPEM [Suspect]
     Active Substance: MEROPENEM
     Dosage: 78 MG, 3X/DAY
     Dates: start: 20200609, end: 20200624

REACTIONS (1)
  - Drug-induced liver injury [Recovering/Resolving]

NARRATIVE: CASE EVENT DATE: 20200617
